FAERS Safety Report 4900057-5 (Version None)
Quarter: 2006Q1

REPORT INFORMATION
  Report Type: 
  Country: None (occurrence: None)
  Receive Date: 20060131
  Receipt Date: 20060110
  Transmission Date: 20060701
  Serious: Yes (Other)
  Sender: FDA-Public Use
  Company Number: A03200600205

PATIENT
  Age: 64 Year
  Sex: Male

DRUGS (10)
  1. OXALIPLATIN - SOLUTION [Suspect]
     Indication: COLON CANCER METASTATIC
     Dosage: INTRAVENOUS NOS
     Route: 042
     Dates: start: 20060110, end: 20060110
  2. LEUCOVORIN CALCIUM [Suspect]
     Indication: COLON CANCER METASTATIC
     Dosage: INTRAVENOUS NOS
     Route: 042
     Dates: end: 20060110
  3. FLUOROURACIL [Concomitant]
  4. CAPECITABINE [Concomitant]
  5. INSULIN [Concomitant]
  6. ISOPHANE INSULIN [Concomitant]
  7. ACETAZOLAMIDE [Concomitant]
  8. LOVASTATIN [Concomitant]
  9. FUROSEMIDE [Concomitant]
  10. POTASSIUM [Concomitant]

REACTIONS (5)
  - CONVULSION [None]
  - INCONTINENCE [None]
  - INFUSION RELATED REACTION [None]
  - LOSS OF CONSCIOUSNESS [None]
  - RESPIRATORY RATE INCREASED [None]
